FAERS Safety Report 6591585-8 (Version None)
Quarter: 2010Q1

REPORT INFORMATION
  Report Type: 
  Country: None (occurrence: None)
  Receive Date: 20100221
  Receipt Date: 20090930
  Transmission Date: 20100710
  Serious: Yes (Other)
  Sender: FDA-Public Use
  Company Number: US-ALLERGAN-0910340US

PATIENT
  Age: 86 Year
  Sex: Female
  Weight: 65.488 kg

DRUGS (5)
  1. BOTOX [Suspect]
     Indication: TORTICOLLIS
     Dosage: 280 UNITS, SINGLE
     Route: 030
     Dates: start: 20090708, end: 20090708
  2. BOTOX [Suspect]
     Dosage: UNK
     Route: 030
     Dates: start: 20090316, end: 20090316
  3. SYNTHROID [Concomitant]
     Dosage: 50 MG, QD
  4. KLONOPIN [Concomitant]
  5. ACIPHEX [Concomitant]
     Dosage: 20 MG, QD

REACTIONS (1)
  - MUSCULAR WEAKNESS [None]
